FAERS Safety Report 17687426 (Version 1)
Quarter: 2020Q2

REPORT INFORMATION
  Report Type: Spontaneous
  Country: GB (occurrence: GB)
  Receive Date: 20200421
  Receipt Date: 20200421
  Transmission Date: 20200714
  Serious: Yes (Disabling, Other)
  Sender: FDA-Public Use
  Company Number: GB-GLAXOSMITHKLINE-GB2020067633

PATIENT
  Age: 65 Year
  Sex: Male
  Weight: 89.35 kg

DRUGS (2)
  1. SUMATRIPTAN SUCCINATE. [Concomitant]
     Active Substance: SUMATRIPTAN SUCCINATE
     Indication: PRODUCT USED FOR UNKNOWN INDICATION
     Dosage: UNK
     Route: 065
  2. AVAMYS [Suspect]
     Active Substance: FLUTICASONE FUROATE
     Indication: NASAL CONGESTION
     Dosage: 110 ?G, QD, TWO SPRAYS INTO EACH NOSTRIL (BEDTIME)
     Route: 045
     Dates: start: 20190303, end: 20200212

REACTIONS (1)
  - Libido decreased [Recovered/Resolved]

NARRATIVE: CASE EVENT DATE: 20190303
